FAERS Safety Report 7336370-4 (Version None)
Quarter: 2011Q1

REPORT INFORMATION
  Report Type: 
  Country: None (occurrence: None)
  Receive Date: 20110307
  Receipt Date: 20110302
  Transmission Date: 20110831
  Serious: Yes (Hospitalization, Other)
  Sender: FDA-Public Use
  Company Number: US-PFIZER INC-2010133267

PATIENT
  Sex: Female

DRUGS (1)
  1. CHANTIX [Suspect]
     Indication: SMOKING CESSATION THERAPY
     Dosage: 0.5 MG, 2X/DAY
     Dates: start: 20081101, end: 20090801

REACTIONS (13)
  - RESPIRATORY DEPRESSION [None]
  - MAJOR DEPRESSION [None]
  - MOOD SWINGS [None]
  - MANIA [None]
  - DELUSION [None]
  - ABNORMAL BEHAVIOUR [None]
  - SUICIDE ATTEMPT [None]
  - DISTURBANCE IN ATTENTION [None]
  - INTENTIONAL OVERDOSE [None]
  - PARANOIA [None]
  - ANXIETY [None]
  - HOSTILITY [None]
  - AMNESIA [None]
